FAERS Safety Report 19905115 (Version 3)
Quarter: 2022Q4

REPORT INFORMATION
  Report Type: Spontaneous
  Country: JP (occurrence: JP)
  Receive Date: 20211001
  Receipt Date: 20221128
  Transmission Date: 20230113
  Serious: Yes (Other)
  Sender: FDA-Public Use
  Company Number: JP-GLAXOSMITHKLINE-JP2021JPN203231

PATIENT

DRUGS (4)
  1. ZOVIRAX [Suspect]
     Active Substance: ACYCLOVIR
     Indication: Herpes zoster
     Dosage: 10 MG/KG, TID
  2. ZOVIRAX [Suspect]
     Active Substance: ACYCLOVIR
     Dosage: 20 MG/KG, TID
  3. ZOVIRAX [Suspect]
     Active Substance: ACYCLOVIR
     Dosage: 12.5 MG/KG, BID
  4. METHYLPREDNISOLONE [Suspect]
     Active Substance: METHYLPREDNISOLONE
     Indication: Haemophagocytic lymphohistiocytosis
     Dosage: UNK

REACTIONS (3)
  - Herpes zoster disseminated [Unknown]
  - Rash [Unknown]
  - Incorrect product administration duration [Unknown]
